FAERS Safety Report 8839829 (Version 1)
Quarter: 2012Q4

REPORT INFORMATION
  Report Type: Spontaneous
  Country: GB (occurrence: None)
  Receive Date: 20121011
  Receipt Date: 20121011
  Transmission Date: 20130627
  Serious: Yes (Disabling)
  Sender: FDA-Public Use
  Company Number: AUR-APL-2012-04292

PATIENT
  Age: 80 Year
  Sex: Male

DRUGS (3)
  1. CITALOPRAM (CITALOPRAM) [Suspect]
     Indication: DEPRESSION
     Route: 048
     Dates: start: 20120911, end: 20120917
  2. CITALOPRAM (CITALOPRAM) [Suspect]
     Indication: DEPRESSION
     Dosage: Dose was doubled, unknown
  3. CITALOPRAM (CITALOPRAM) [Suspect]
     Indication: DEPRESSION

REACTIONS (4)
  - Faecal incontinence [None]
  - Urinary incontinence [None]
  - Delirium [None]
  - Mobility decreased [None]
